FAERS Safety Report 16938610 (Version 1)
Quarter: 2019Q4

REPORT INFORMATION
  Report Type: Spontaneous
  Country: US (occurrence: US)
  Receive Date: 20190828
  Receipt Date: 20190828
  Transmission Date: 20200122
  Serious: Yes (Hospitalization, Other)
  Sender: FDA-Public Use
  Company Number: None

PATIENT
  Sex: Female
  Weight: 59.87 kg

DRUGS (1)
  1. GLATIRAMER 40MG [Suspect]
     Active Substance: GLATIRAMER
     Indication: MULTIPLE SCLEROSIS
     Dates: start: 20190522, end: 20190703

REACTIONS (10)
  - Tachycardia [None]
  - Feeling of body temperature change [None]
  - Swelling [None]
  - Arrhythmia [None]
  - Urticaria [None]
  - Erythema [None]
  - Pyrexia [None]
  - Headache [None]
  - Pain [None]
  - Musculoskeletal stiffness [None]
